FAERS Safety Report 8775269 (Version 1)
Quarter: 2012Q4

REPORT INFORMATION
  Report Type: 
  Country: MX (occurrence: MX)
  Receive Date: 20120910
  Receipt Date: 20120910
  Transmission Date: 20130627
  Serious: Yes (Hospitalization)
  Sender: FDA-Public Use
  Company Number: MX-ROCHE-1007095

PATIENT
  Sex: Male

DRUGS (2)
  1. XOLAIR [Suspect]
     Indication: ASTHMA
     Route: 065
     Dates: start: 201107
  2. MONTELUKAST [Concomitant]
     Indication: ASTHMA
     Route: 065
     Dates: start: 200610

REACTIONS (1)
  - Asthma [Recovered/Resolved]
